FAERS Safety Report 9721811 (Version 1)
Quarter: 2013Q4

REPORT INFORMATION
  Report Type: Spontaneous
  Country: US (occurrence: US)
  Receive Date: 20131201
  Receipt Date: 20131201
  Transmission Date: 20140711
  Serious: No
  Sender: FDA-Public Use
  Company Number: US-ABBVIE-13P-163-1159989-00

PATIENT
  Sex: Male
  Weight: 108.96 kg

DRUGS (8)
  1. ANDROGEL [Suspect]
     Indication: PRODUCT USED FOR UNKNOWN INDICATION
     Dosage: 8 PUMPS DAILY
     Route: 061
     Dates: start: 201302, end: 201303
  2. ANDROGEL [Suspect]
     Dosage: 4 PUMPS DAILY
     Route: 061
     Dates: start: 201303, end: 201304
  3. ANDROGEL [Suspect]
     Dosage: 3 PUMPS DAILY
     Route: 061
     Dates: start: 201305, end: 201307
  4. ANDROGEL [Suspect]
     Dosage: 2 PUMPS DAILY
     Route: 061
     Dates: start: 201307
  5. ANDROGEL [Suspect]
     Indication: PRODUCT USED FOR UNKNOWN INDICATION
     Dosage: (2) 5 GRAM PACKET DAILY
     Route: 061
     Dates: start: 2010, end: 201302
  6. QUINAPRIL [Concomitant]
     Indication: PRODUCT USED FOR UNKNOWN INDICATION
     Route: 048
  7. QUINAPRIL [Concomitant]
     Route: 048
     Dates: start: 201303, end: 201304
  8. GLYBURIDE [Concomitant]
     Indication: PRODUCT USED FOR UNKNOWN INDICATION

REACTIONS (4)
  - Incorrect dose administered [Recovered/Resolved]
  - Blood pressure increased [Recovered/Resolved]
  - Blood testosterone increased [Recovered/Resolved]
  - Drug dispensing error [Not Recovered/Not Resolved]
